FAERS Safety Report 21478557 (Version 2)
Quarter: 2022Q4

REPORT INFORMATION
  Report Type: Spontaneous
  Country: SI (occurrence: None)
  Receive Date: 20221019
  Receipt Date: 20221101
  Transmission Date: 20230113
  Serious: Yes (Other)
  Sender: FDA-Public Use
  Company Number: SI-Merck Healthcare KGaA-9357645

PATIENT
  Sex: Female

DRUGS (1)
  1. MAVENCLAD [Suspect]
     Active Substance: CLADRIBINE
     Indication: Secondary progressive multiple sclerosis
     Dosage: CYCLE ONE THERAPY

REACTIONS (2)
  - Paraparesis [Recovering/Resolving]
  - Condition aggravated [Recovering/Resolving]
